FAERS Safety Report 6313965-8 (Version None)
Quarter: 2009Q3

REPORT INFORMATION
  Report Type: 
  Country: None (occurrence: None)
  Receive Date: 20090818
  Receipt Date: 20090807
  Transmission Date: 20100115
  Serious: Yes (Hospitalization)
  Sender: FDA-Public Use
  Company Number: PHHY2009DE33457

PATIENT
  Sex: Female

DRUGS (7)
  1. FEMARA [Suspect]
     Indication: BREAST CANCER
     Dosage: 2.5 MG, 1-0-0
     Route: 048
  2. OMEPRAZOLE [Concomitant]
     Dosage: 20 MG DAILY
     Route: 048
  3. NEBILET [Concomitant]
     Dosage: 1/2-0-0
     Route: 048
  4. PANTOZOL [Concomitant]
     Dosage: 20 MG,1-0-0
     Route: 048
  5. CARMEN [Concomitant]
     Dosage: 10 MG, 1-0-0
     Route: 048
  6. ALLOPURINOL [Concomitant]
     Dosage: 100 MG, 1-0-0
     Route: 048
  7. CLEXANE [Concomitant]
     Dosage: 0.7 ML
     Route: 058
     Dates: end: 20090318

REACTIONS (3)
  - ARTERIAL OCCLUSIVE DISEASE [None]
  - LIVIDITY [None]
  - RAYNAUD'S PHENOMENON [None]
